FAERS Safety Report 6271541-X (Version None)
Quarter: 2009Q3

REPORT INFORMATION
  Report Type: 
  Country: None (occurrence: None)
  Receive Date: 20090717
  Receipt Date: 20060615
  Transmission Date: 20100115
  Serious: Yes (Life-Threatening)
  Sender: FDA-Public Use
  Company Number: US-AMGEN-US355309

PATIENT
  Age: 67 Year
  Sex: Male

DRUGS (8)
  1. PANITUMUMAB [Suspect]
     Indication: SQUAMOUS CELL CARCINOMA
     Route: 042
     Dates: start: 20060503, end: 20060607
  2. CARBOPLATIN [Suspect]
     Route: 042
     Dates: start: 20060503, end: 20060607
  3. TAXOL [Suspect]
     Route: 042
     Dates: start: 20060503, end: 20060607
  4. DIFLUCAN [Concomitant]
     Route: 048
  5. DURAGESIC-100 [Concomitant]
  6. REGLAN [Concomitant]
  7. ROXICET [Concomitant]
  8. ZOFRAN [Concomitant]

REACTIONS (1)
  - MUCOSAL INFLAMMATION [None]
